FAERS Safety Report 19052903 (Version 8)
Quarter: 2024Q1

REPORT INFORMATION
  Report Type: Spontaneous
  Country: AT (occurrence: AT)
  Receive Date: 20210325
  Receipt Date: 20240330
  Transmission Date: 20240410
  Serious: Yes (Death, Other)
  Sender: FDA-Public Use
  Company Number: AT-CELLTRION INC.-2021AT003786

PATIENT

DRUGS (27)
  1. TRASTUZUMAB [Suspect]
     Active Substance: TRASTUZUMAB
     Indication: HER2 positive gastric cancer
     Dosage: FIRST LINE THERAPY 6 CYCLES (CYCLICAL)/6 CYLICAL
     Route: 065
     Dates: start: 201609, end: 201703
  2. TRASTUZUMAB [Suspect]
     Active Substance: TRASTUZUMAB
     Indication: Adenocarcinoma gastric
     Dosage: MAINTENANCE THERAPY
     Route: 065
     Dates: start: 201703, end: 201810
  3. TRASTUZUMAB [Suspect]
     Active Substance: TRASTUZUMAB
     Indication: Metastases to lymph nodes
     Dosage: SYSTEMIC THERAPY WITH ORAL CAPECITABINE
     Route: 065
     Dates: start: 201810, end: 201903
  4. TRASTUZUMAB [Suspect]
     Active Substance: TRASTUZUMAB
     Indication: Metastases to liver
     Dosage: UNK; STOP DATE: ??-OCT-2018
     Route: 065
     Dates: end: 201810
  5. TRASTUZUMAB [Suspect]
     Active Substance: TRASTUZUMAB
     Dosage: CYCLICAL
     Route: 065
     Dates: start: 201609, end: 201703
  6. TRASTUZUMAB [Suspect]
     Active Substance: TRASTUZUMAB
     Dosage: UNK
     Route: 065
  7. TRASTUZUMAB [Suspect]
     Active Substance: TRASTUZUMAB
     Indication: Metastases to lymph nodes
     Dosage: UNK, CYCLIC (6 CYCLE)
     Dates: start: 201609, end: 201703
  8. TRASTUZUMAB [Suspect]
     Active Substance: TRASTUZUMAB
     Indication: Adenocarcinoma gastric
  9. TRASTUZUMAB [Suspect]
     Active Substance: TRASTUZUMAB
     Indication: Metastases to liver
  10. CISPLATIN [Suspect]
     Active Substance: CISPLATIN
     Indication: HER2 positive gastric cancer
     Dosage: FIRST LINE THERAPY 6 CYCLES (CYCLICAL)/6 CYCLICAL
     Route: 065
     Dates: start: 201609, end: 201703
  11. CISPLATIN [Suspect]
     Active Substance: CISPLATIN
     Indication: Adenocarcinoma gastric
     Dosage: UNK
     Route: 065
     Dates: start: 2016
  12. CISPLATIN [Suspect]
     Active Substance: CISPLATIN
     Indication: Metastases to lymph nodes
     Dosage: CYCLICAL
     Route: 065
     Dates: start: 201609, end: 201703
  13. CISPLATIN [Suspect]
     Active Substance: CISPLATIN
     Indication: Metastases to liver
     Dosage: UNK
     Route: 065
  14. CISPLATIN [Suspect]
     Active Substance: CISPLATIN
     Indication: Adenocarcinoma gastric
     Dosage: UNK, CYCLIC (6 CYCLE)
     Dates: start: 201609, end: 201710
  15. CISPLATIN [Suspect]
     Active Substance: CISPLATIN
     Indication: Metastases to lymph nodes
     Dosage: UNK, CYCLIC (6 CYCLE)/6 CYCLICAL
     Dates: start: 201609, end: 201703
  16. CISPLATIN [Suspect]
     Active Substance: CISPLATIN
     Indication: Metastases to liver
  17. CAPECITABINE [Suspect]
     Active Substance: CAPECITABINE
     Indication: HER2 positive gastric cancer
     Dosage: FIRST LINE THERAPY 6 CYCLES (CYCLICAL)/6 CYLICAL
     Route: 065
     Dates: start: 201609, end: 201703
  18. CAPECITABINE [Suspect]
     Active Substance: CAPECITABINE
     Indication: Adenocarcinoma gastric
     Dosage: UNK
     Route: 048
     Dates: start: 2016
  19. CAPECITABINE [Suspect]
     Active Substance: CAPECITABINE
     Indication: Metastases to lymph nodes
     Dosage: SYSTEMIC THERAPY WITH TRASTUZUMAB
     Route: 048
     Dates: start: 201810, end: 201903
  20. CAPECITABINE [Suspect]
     Active Substance: CAPECITABINE
     Indication: Metastases to liver
     Dosage: CYCLICAL
     Route: 065
     Dates: start: 201609, end: 201703
  21. CAPECITABINE [Suspect]
     Active Substance: CAPECITABINE
     Dosage: UNK
     Route: 048
  22. CAPECITABINE [Suspect]
     Active Substance: CAPECITABINE
     Indication: Adenocarcinoma gastric
     Dosage: UNK, CYCLIC (6 CYCLE)
     Dates: start: 201609, end: 201703
  23. CAPECITABINE [Suspect]
     Active Substance: CAPECITABINE
     Indication: Metastases to lymph nodes
  24. CAPECITABINE [Suspect]
     Active Substance: CAPECITABINE
     Indication: Metastases to liver
  25. RAMUCIRUMAB [Concomitant]
     Active Substance: RAMUCIRUMAB
     Indication: Metastatic gastric cancer
     Dosage: 2ND LINE THERAPY 6 CYCLES
     Route: 065
     Dates: start: 201904, end: 201910
  26. RAMUCIRUMAB [Concomitant]
     Active Substance: RAMUCIRUMAB
     Dosage: MAINTENANCE THERAPY
     Route: 065
     Dates: start: 201910, end: 201912
  27. PACLITAXEL [Concomitant]
     Active Substance: PACLITAXEL
     Indication: Metastatic gastric cancer
     Dosage: 2ND LINE THERAPY 6 CYCLES
     Route: 065
     Dates: start: 201904, end: 201910

REACTIONS (18)
  - Metastatic gastric cancer [Fatal]
  - Adenocarcinoma [Fatal]
  - Disease progression [Fatal]
  - Neoplasm progression [Fatal]
  - Metastases to lymph nodes [Fatal]
  - Metastases to liver [Fatal]
  - Metastases to lung [Fatal]
  - Metastases to peritoneum [Fatal]
  - Malignant mesenteric neoplasm [Fatal]
  - Disease progression [Fatal]
  - Disease progression [Fatal]
  - Ileus [Unknown]
  - Colostomy [Unknown]
  - Toxicity to various agents [Unknown]
  - Infection [Unknown]
  - White blood cell count decreased [Unknown]
  - Palmar-plantar erythrodysaesthesia syndrome [Unknown]
  - Therapy partial responder [Unknown]

NARRATIVE: CASE EVENT DATE: 20181001
